FAERS Safety Report 9670341 (Version 1)
Quarter: 2013Q4

REPORT INFORMATION
  Report Type: Spontaneous
  Country: IT (occurrence: IT)
  Receive Date: 20131105
  Receipt Date: 20131105
  Transmission Date: 20140711
  Serious: Yes (Other)
  Sender: FDA-Public Use
  Company Number: PHHY2013IT123158

PATIENT
  Age: 78 Year
  Sex: Female

DRUGS (4)
  1. AMIODARONE [Suspect]
     Indication: ATRIAL FIBRILLATION
     Dosage: 200 MG, QD
     Route: 048
     Dates: start: 20120911, end: 20130808
  2. BISOPROLOL [Suspect]
     Dates: start: 20110715, end: 20131018
  3. MINITRAN [Concomitant]
     Route: 062
     Dates: start: 20110828, end: 20131018
  4. TORVAST [Concomitant]
     Dosage: 40 MG, UNK
     Dates: start: 20110715, end: 20131018

REACTIONS (1)
  - Hyperthyroidism [Not Recovered/Not Resolved]
